FAERS Safety Report 6541368-X (Version None)
Quarter: 2010Q1

REPORT INFORMATION
  Report Type: 
  Country: None (occurrence: None)
  Receive Date: 20100118
  Receipt Date: 20100112
  Transmission Date: 20100710
  Serious: Yes (Death, Hospitalization, Disabling, Other)
  Sender: FDA-Public Use
  Company Number: PHHY2009JP48272

PATIENT
  Sex: Male

DRUGS (4)
  1. ZOMETA [Suspect]
     Indication: METASTASES TO BONE
     Dosage: 4MG (SINGLE DOSE)
     Route: 042
     Dates: start: 20090820
  2. ZOMETA [Suspect]
     Dosage: 4MG (SINGLE DOSE)
     Route: 042
     Dates: start: 20091029
  3. CARBOPLATIN [Suspect]
     Dosage: 480 MG, UNK
     Route: 042
     Dates: start: 20090819
  4. ALIMTA [Suspect]
     Dosage: 500 MG, UNK
     Route: 042
     Dates: start: 20090819

REACTIONS (7)
  - CANCER PAIN [None]
  - INTERSTITIAL LUNG DISEASE [None]
  - MALAISE [None]
  - MALIGNANT NEOPLASM PROGRESSION [None]
  - PYREXIA [None]
  - RESPIRATORY FAILURE [None]
  - WHITE BLOOD CELL COUNT DECREASED [None]
